FAERS Safety Report 7700325-8 (Version None)
Quarter: 2011Q3

REPORT INFORMATION
  Report Type: 
  Country: None (occurrence: None)
  Receive Date: 20110822
  Receipt Date: 20110815
  Transmission Date: 20111222
  Serious: Yes (Other)
  Sender: FDA-Public Use
  Company Number: PHHY2010CA46615

PATIENT
  Sex: Female

DRUGS (1)
  1. ZOLEDRONOC ACID [Suspect]
     Indication: OSTEOPOROSIS
     Dosage: UNK
     Dates: start: 20090715

REACTIONS (5)
  - PAIN IN JAW [None]
  - MYOCARDIAL INFARCTION [None]
  - ARTHRALGIA [None]
  - PROCEDURAL COMPLICATION [None]
  - OSTEONECROSIS OF JAW [None]
